FAERS Safety Report 4283866-8 (Version None)
Quarter: 2004Q1

REPORT INFORMATION
  Report Type: 
  Country: None (occurrence: None)
  Receive Date: 20040130
  Receipt Date: 20040121
  Transmission Date: 20041129
  Serious: Yes (Hospitalization, Other)
  Sender: FDA-Public Use
  Company Number: THQ2004A00141

PATIENT
  Age: 81 Year
  Sex: Female

DRUGS (1)
  1. PIOGLITAZONE HCL [Suspect]
     Indication: DIABETES MELLITUS
     Dosage: 30 MG 1 (D)
     Dates: start: 20031007, end: 20031022

REACTIONS (1)
  - DERMATITIS ALLERGIC [None]
